FAERS Safety Report 5394390-3 (Version None)
Quarter: 2007Q3

REPORT INFORMATION
  Report Type: 
  Country: None (occurrence: None)
  Receive Date: 20070723
  Receipt Date: 20070712
  Transmission Date: 20080115
  Serious: Yes (Hospitalization)
  Sender: FDA-Public Use
  Company Number: US-SANOFI-SYNTHELABO-F01200700682

PATIENT
  Sex: Male

DRUGS (3)
  1. XELODA [Suspect]
     Dosage: D1-D14
     Route: 048
     Dates: start: 20070404, end: 20070412
  2. BEVACIZUMAB [Suspect]
     Dosage: D1-D15 5 MG/KG
     Route: 042
     Dates: start: 20070404, end: 20070404
  3. OXALIPLATIN [Suspect]
     Indication: RECTAL CANCER
     Dosage: D1 AND D15 85 MG/M2
     Route: 042
     Dates: start: 20070404, end: 20070404

REACTIONS (4)
  - BONE PAIN [None]
  - FRACTURE [None]
  - IMPAIRED HEALING [None]
  - VOMITING [None]
